FAERS Safety Report 9377719 (Version 2)
Quarter: 2013Q3

REPORT INFORMATION
  Report Type: Spontaneous
  Country: US (occurrence: US)
  Receive Date: 20130701
  Receipt Date: 20130914
  Transmission Date: 20140515
  Serious: Yes (Life-Threatening, Other)
  Sender: FDA-Public Use
  Company Number: US-BRISTOL-MYERS SQUIBB COMPANY-19028737

PATIENT
  Age: 32 Year
  Sex: Male

DRUGS (5)
  1. ABILIFY [Suspect]
     Indication: AFFECTIVE DISORDER
     Dosage: EVENING
     Route: 048
     Dates: start: 201108
  2. LITHIUM [Suspect]
     Indication: MOOD SWINGS
     Dosage: 300 MG ORALLY IN THE MORNING ANID 600 MG ORALLY IN THE EVENING
     Route: 048
  3. BENADRYL [Suspect]
     Indication: ANXIETY
     Dosage: EVENING
     Route: 048
  4. BENADRYL [Suspect]
     Indication: SLEEP DISORDER
     Dosage: EVENING
     Route: 048
  5. ASPIRIN [Concomitant]
     Dosage: ONCE IN MORNING
     Route: 048

REACTIONS (1)
  - Atrial fibrillation [Recovered/Resolved]
